FAERS Safety Report 5263581-4 (Version None)
Quarter: 2007Q1

REPORT INFORMATION
  Report Type: 
  Country: None (occurrence: None)
  Receive Date: 20061213
  Receipt Date: 20030813
  Transmission Date: 20070707
  Serious: No
  Sender: FDA-Public Use
  Company Number: 2003UW10336

PATIENT
  Age: 74 Year
  Sex: Male

DRUGS (1)
  1. IRESSA [Suspect]
     Indication: SMALL CELL CARCINOMA

REACTIONS (1)
  - DISEASE PROGRESSION [None]
